FAERS Safety Report 12245819 (Version 3)
Quarter: 2016Q3

REPORT INFORMATION
  Report Type: Spontaneous
  Country: US (occurrence: US)
  Receive Date: 20160407
  Receipt Date: 20160825
  Transmission Date: 20161109
  Serious: Yes (Other)
  Sender: FDA-Public Use
  Company Number: US-TEVA-648874USA

PATIENT
  Age: 35 Year
  Sex: Female

DRUGS (2)
  1. ZECUITY [Suspect]
     Active Substance: SUMATRIPTAN SUCCINATE
     Indication: HEADACHE
     Route: 062
     Dates: start: 201602, end: 201602
  2. TOPAMAX [Concomitant]
     Active Substance: TOPIRAMATE

REACTIONS (12)
  - Application site pain [Recovered/Resolved]
  - Sunburn [Recovered/Resolved]
  - Application site discolouration [Not Recovered/Not Resolved]
  - Drug ineffective [Unknown]
  - Application site irritation [Unknown]
  - Application site warmth [Recovered/Resolved]
  - Application site papules [Recovered/Resolved]
  - Application site burn [Recovered/Resolved]
  - Application site erythema [Recovered/Resolved]
  - Application site pustules [Recovered/Resolved]
  - Application site pruritus [Recovered/Resolved]
  - Application site exfoliation [Recovered/Resolved]

NARRATIVE: CASE EVENT DATE: 201602
